FAERS Safety Report 4720679-4 (Version None)
Quarter: 2005Q3

REPORT INFORMATION
  Report Type: 
  Country: None (occurrence: None)
  Receive Date: 20050721
  Receipt Date: 20050707
  Transmission Date: 20060218
  Serious: Yes (Life-Threatening)
  Sender: FDA-Public Use
  Company Number: DE-JNJFOC-20050200391

PATIENT
  Sex: Female
  Weight: 52 kg

DRUGS (6)
  1. DURAGESIC-100 [Suspect]
     Indication: PAIN
     Route: 062
  2. IBUFLAM [Concomitant]
     Route: 048
  3. AMARYL [Concomitant]
     Route: 048
  4. NEXIUM [Concomitant]
     Route: 065
  5. ESIDRIX [Concomitant]
     Route: 048
  6. ISOPTIN [Concomitant]
     Route: 065

REACTIONS (4)
  - APNOEA [None]
  - HANGOVER [None]
  - OSTEOARTHRITIS [None]
  - SOMNOLENCE [None]
